FAERS Safety Report 24194833 (Version 1)
Quarter: 2024Q3

REPORT INFORMATION
  Report Type: Spontaneous
  Country: BR (occurrence: BR)
  Receive Date: 20240809
  Receipt Date: 20240809
  Transmission Date: 20241017
  Serious: Yes (Hospitalization, Other)
  Sender: GILEAD
  Company Number: BR-GILEAD-2024-0682018

PATIENT
  Age: 54 Year
  Sex: Male
  Weight: 88.9 kg

DRUGS (1)
  1. YESCARTA [Suspect]
     Active Substance: AXICABTAGENE CILOLEUCEL
     Indication: Primary mediastinal large B-cell lymphoma
     Dosage: 2.0 X 10^6 ANTI-CD19 CAR T CELLS/KG
     Route: 042
     Dates: start: 20240716, end: 20240716

REACTIONS (4)
  - Platelet count decreased [Not Recovered/Not Resolved]
  - Unevaluable event [Recovered/Resolved]
  - Pyrexia [Not Recovered/Not Resolved]
  - Immune effector cell-associated neurotoxicity syndrome [Recovered/Resolved]

NARRATIVE: CASE EVENT DATE: 20240724
